FAERS Safety Report 10172997 (Version 1)
Quarter: 2014Q2

REPORT INFORMATION
  Report Type: Spontaneous
  Country: US (occurrence: US)
  Receive Date: 20140515
  Receipt Date: 20140515
  Transmission Date: 20141212
  Serious: Yes (Other)
  Sender: FDA-Public Use
  Company Number: US-AMGEN-USASP2014034359

PATIENT
  Age: 76 Year
  Sex: Male

DRUGS (5)
  1. PROLIA [Suspect]
     Indication: BONE LOSS
     Dosage: UNK
     Route: 065
     Dates: start: 201307
  2. XGEVA [Suspect]
     Indication: PROPHYLAXIS
     Dosage: 120 MG, Q6MO
     Route: 065
     Dates: start: 20140115
  3. XGEVA [Suspect]
     Indication: PROSTATE CANCER METASTATIC
  4. VITAMINS                           /00067501/ [Concomitant]
     Route: 065
  5. ASPIRIN [Concomitant]
     Route: 065

REACTIONS (4)
  - Metastases to bone [Unknown]
  - Inappropriate schedule of drug administration [Unknown]
  - Lip swelling [Unknown]
  - Glossodynia [Unknown]
